FAERS Safety Report 23803967 (Version 1)
Quarter: 2024Q2

REPORT INFORMATION
  Report Type: Spontaneous
  Country: US (occurrence: US)
  Receive Date: 20240501
  Receipt Date: 20240501
  Transmission Date: 20240716
  Serious: No
  Sender: FDA-Public Use
  Company Number: US-BAYER-2024A064869

PATIENT
  Age: 65 Year
  Sex: Female

DRUGS (1)
  1. ALEVE [Suspect]
     Active Substance: NAPROXEN SODIUM
     Indication: Pain
     Dosage: 1 DF, BID (ONE TABLET AT NIGHT AND ONE IN THE MORNING)
     Route: 048
     Dates: start: 20240429, end: 20240430

REACTIONS (1)
  - Nausea [None]

NARRATIVE: CASE EVENT DATE: 20240430
